FAERS Safety Report 8518568-2 (Version None)
Quarter: 2012Q3

REPORT INFORMATION
  Report Type: 
  Country: None (occurrence: None)
  Receive Date: 20120718
  Receipt Date: 20120523
  Transmission Date: 20120928
  Serious: No
  Sender: FDA-Public Use
  Company Number: US-BRISTOL-MYERS SQUIBB COMPANY-16619751

PATIENT
  Age: 76 Year
  Sex: Female

DRUGS (14)
  1. HUMIRA [Suspect]
     Indication: CROHN'S DISEASE
     Dosage: 2003-2005,JAN12-UNK,INTERRUPTED,0.8ML PEN
     Dates: start: 20030101
  2. ACETAMINOPHEN [Concomitant]
     Dosage: 1 DF: 1 UNITS NOS AT HS,DOZOL
  3. POTASSIUM CHLORIDE [Concomitant]
     Dosage: 2 IN AM,2 IN PM
  4. COUMADIN [Suspect]
     Dosage: 2.5 MG MON-SAT,SUN 5MG,2011-UNK,2011-UNK
     Route: 065
     Dates: start: 20110101
  5. FOLIC ACID [Concomitant]
  6. FERROUS SULFATE TAB [Concomitant]
  7. CALCIUM [Concomitant]
     Dosage: CALCIUM D3
  8. LEVOTHYROXINE SODIUM [Concomitant]
     Dosage: PRE HUMIRA
     Dates: start: 20030101
  9. OMEPRAZOLE [Concomitant]
  10. COLECALCIFEROL [Concomitant]
     Dosage: CALCIUM D3
  11. LANOXIN [Concomitant]
     Dosage: 1 DF : 3 TABS,UNK-MAR12,MAR12-UNK;2TABS,2011-UNK;0.125MG-2 TABS
  12. DIPHENHYDRAMINE HCL [Concomitant]
     Dosage: 1 DF: 1 UNITS NOS AT HS,DOZOL
  13. CYANOCOBALAMIN [Concomitant]
     Dosage: INJ
     Dates: start: 20100101
  14. MAGNESIUM OXIDE [Concomitant]
     Dosage: 800MG,400MG 4 IN 1D;1600MG

REACTIONS (9)
  - CYSTITIS [None]
  - INJECTION SITE IRRITATION [None]
  - BLOOD MAGNESIUM DECREASED [None]
  - NAUSEA [None]
  - INJECTION SITE HAEMATOMA [None]
  - INJECTION SITE ERYTHEMA [None]
  - DIARRHOEA [None]
  - DECREASED APPETITE [None]
  - WEIGHT DECREASED [None]
